FAERS Safety Report 20834702 (Version 2)
Quarter: 2022Q3

REPORT INFORMATION
  Report Type: Report from Study
  Country: US (occurrence: None)
  Receive Date: 20220516
  Receipt Date: 20220729
  Transmission Date: 20221027
  Serious: Yes (Hospitalization)
  Sender: FDA-Public Use
  Company Number: US-Merck Healthcare KGaA-9307085

PATIENT
  Age: 71 Year
  Sex: Female

DRUGS (1)
  1. MAVENCLAD [Suspect]
     Active Substance: CLADRIBINE
     Indication: Multiple sclerosis
     Dosage: YEAR ONE MONTH ONE THERAPY: TWO TABLETS ON DAY ONE AND ONE TABLET ON DAYS TWO TO FIVE
     Route: 048
     Dates: start: 20220215, end: 20220219

REACTIONS (12)
  - Peripheral artery occlusion [Unknown]
  - Arterial occlusive disease [Unknown]
  - Peripheral vascular disorder [Unknown]
  - Multiple sclerosis relapse [Unknown]
  - Dehydration [Unknown]
  - Confusional state [Unknown]
  - White blood cell count decreased [Unknown]
  - Red blood cell count decreased [Unknown]
  - Haemoglobin decreased [Unknown]
  - Haematocrit decreased [Unknown]
  - Post procedural swelling [Not Recovered/Not Resolved]
  - Impaired healing [Not Recovered/Not Resolved]

NARRATIVE: CASE EVENT DATE: 20220101
